FAERS Safety Report 4718395-8 (Version None)
Quarter: 2005Q3

REPORT INFORMATION
  Report Type: 
  Country: None (occurrence: None)
  Receive Date: 20050720
  Receipt Date: 20050117
  Transmission Date: 20060218
  Serious: Yes (Hospitalization, Other)
  Sender: FDA-Public Use
  Company Number: US-MERCK-0501USA02662

PATIENT
  Age: 66 Year
  Sex: Female
  Weight: 59 kg

DRUGS (12)
  1. VIOXX [Suspect]
     Indication: ARTHRALGIA
     Route: 048
     Dates: start: 19990501
  2. VIOXX [Suspect]
     Route: 048
     Dates: start: 20040501, end: 20040501
  3. VIOXX [Suspect]
     Route: 048
     Dates: start: 20040501, end: 20040930
  4. VIOXX [Suspect]
     Indication: RHEUMATOID ARTHRITIS
     Route: 048
     Dates: start: 19990501
  5. VIOXX [Suspect]
     Route: 048
     Dates: start: 20040501, end: 20040501
  6. VIOXX [Suspect]
     Route: 048
     Dates: start: 20040501, end: 20040930
  7. NEURONTIN [Concomitant]
     Route: 065
  8. SYNTHROID [Concomitant]
     Route: 065
  9. HYDRODIURIL [Concomitant]
     Route: 048
  10. ARAVA [Concomitant]
     Route: 065
     Dates: start: 19990501
  11. METHOTREXATE [Concomitant]
     Route: 065
  12. PREMARIN [Concomitant]
     Route: 065

REACTIONS (18)
  - AMAUROSIS FUGAX [None]
  - ANAPHYLACTIC SHOCK [None]
  - ANGINA UNSTABLE [None]
  - ARTHROPATHY [None]
  - DYSPHAGIA [None]
  - FALL [None]
  - GAIT DISTURBANCE [None]
  - HEADACHE [None]
  - HYPOAESTHESIA [None]
  - HYPOXIA [None]
  - MULTIPLE SCLEROSIS [None]
  - PAIN IN EXTREMITY [None]
  - PLEURAL EFFUSION [None]
  - PNEUMONIA [None]
  - RENAL DISORDER [None]
  - SYNCOPE [None]
  - TRANSIENT ISCHAEMIC ATTACK [None]
  - VISUAL DISTURBANCE [None]
